FAERS Safety Report 17856305 (Version 3)
Quarter: 2020Q3

REPORT INFORMATION
  Report Type: Spontaneous
  Country: DE (occurrence: DE)
  Receive Date: 20200603
  Receipt Date: 20200707
  Transmission Date: 20201103
  Serious: Yes (Hospitalization)
  Sender: FDA-Public Use
  Company Number: NVSC2020DE150970

PATIENT
  Age: 40 Year
  Sex: Female

DRUGS (1)
  1. PARACETAMOL [Suspect]
     Active Substance: ACETAMINOPHEN
     Indication: TOOTHACHE
     Dosage: INGESTION OF 4 G PARACETAMOL CORRESPONDING TO 73 MG/ KG BODY WEIGHT/DAY OVER 3 DAYS
     Route: 048

REACTIONS (3)
  - Intentional overdose [Unknown]
  - Overdose [Unknown]
  - Hepatic failure [Unknown]
